FAERS Safety Report 8459114-1 (Version None)
Quarter: 2012Q2

REPORT INFORMATION
  Report Type: 
  Country: None (occurrence: None)
  Receive Date: 20120618
  Receipt Date: 20120609
  Transmission Date: 20120825
  Serious: Yes (Other)
  Sender: FDA-Public Use
  Company Number: ADR-2012-01108

PATIENT
  Sex: Female

DRUGS (4)
  1. FENTANYL [Concomitant]
  2. LIORESAL [Suspect]
     Indication: POST LAMINECTOMY SYNDROME
     Dosage: 1.66 MCG/DAY
     Route: 037
  3. LIORESAL [Suspect]
     Indication: PAIN
     Dosage: 1.66 MCG/DAY
     Route: 037
  4. BUPIVACAINE HCL [Concomitant]

REACTIONS (5)
  - DRUG WITHDRAWAL SYNDROME [None]
  - DEVICE COMPUTER ISSUE [None]
  - INCORRECT DOSE ADMINISTERED BY DEVICE [None]
  - INFLUENZA [None]
  - INFLUENZA LIKE ILLNESS [None]
